FAERS Safety Report 10883404 (Version 1)
Quarter: 2015Q1

REPORT INFORMATION
  Report Type: Spontaneous
  Country: US (occurrence: US)
  Receive Date: 20150303
  Receipt Date: 20150303
  Transmission Date: 20150721
  Serious: Yes (Death)
  Sender: FDA-Public Use
  Company Number: US-ROCHE-1546302

PATIENT
  Age: 60 Year
  Sex: Female
  Weight: 99.88 kg

DRUGS (1)
  1. AVASTIN [Suspect]
     Active Substance: BEVACIZUMAB
     Indication: CERVIX CARCINOMA
     Route: 042
     Dates: start: 20150206

REACTIONS (1)
  - Death [Fatal]

NARRATIVE: CASE EVENT DATE: 20150225
